FAERS Safety Report 8033812-6 (Version None)
Quarter: 2012Q1

REPORT INFORMATION
  Report Type: 
  Country: None (occurrence: None)
  Receive Date: 20120110
  Receipt Date: 20120102
  Transmission Date: 20120608
  Serious: Yes (Other)
  Sender: FDA-Public Use
  Company Number: DE-JUTA GMBH-2012-00100

PATIENT
  Sex: Female

DRUGS (6)
  1. FERROUS SULFATE TAB [Suspect]
     Indication: PRODUCT USED FOR UNKNOWN INDICATION
     Dosage: 30 CAPSULES; TOTAL AMOUNT 3,000 MG
     Route: 048
     Dates: start: 20111201
  2. METFORMIN HCL [Suspect]
     Indication: PRODUCT USED FOR UNKNOWN INDICATION
     Dosage: 1,000MG TABLETS; 15-30 TABLETS
     Route: 048
     Dates: start: 20111201
  3. NEXIUM [Suspect]
     Indication: PRODUCT USED FOR UNKNOWN INDICATION
     Dosage: 40 MG TABS; TOTAL DDOSE: 840 MG
     Route: 048
     Dates: start: 20111201
  4. RISPERDAL [Suspect]
     Indication: PRODUCT USED FOR UNKNOWN INDICATION
     Dosage: TOTAL AMOUNT: 100MG
     Route: 048
     Dates: start: 20111201
  5. MIGRALAVE [Suspect]
     Dosage: 10 TABLETS
     Route: 048
     Dates: start: 20111201
  6. METHIMAZOLE [Suspect]
     Dosage: 25 TABS; TOTAL AMOUNT 125MG
     Route: 048
     Dates: start: 20111201

REACTIONS (5)
  - VOMITING [None]
  - SUICIDE ATTEMPT [None]
  - TACHYCARDIA [None]
  - DIARRHOEA [None]
  - SOMNOLENCE [None]
